FAERS Safety Report 8459248-1 (Version None)
Quarter: 2012Q2

REPORT INFORMATION
  Report Type: 
  Country: None (occurrence: None)
  Receive Date: 20120618
  Receipt Date: 20090916
  Transmission Date: 20120825
  Serious: No
  Sender: FDA-Public Use
  Company Number: 2009AP003807

PATIENT
  Sex: Female

DRUGS (2)
  1. DILTIAZEM HYDROCHOLORIDE [Concomitant]
  2. DILT-CD [Suspect]

REACTIONS (2)
  - DEPRESSED MOOD [None]
  - HEAD DISCOMFORT [None]
